FAERS Safety Report 18612034 (Version 2)
Quarter: 2020Q4

REPORT INFORMATION
  Report Type: Spontaneous
  Country: MY (occurrence: MY)
  Receive Date: 20201214
  Receipt Date: 20201216
  Transmission Date: 20210114
  Serious: Yes (Other)
  Sender: FDA-Public Use
  Company Number: MY-ABBVIE-20K-101-3689264-00

PATIENT
  Age: 67 Year
  Sex: Male

DRUGS (1)
  1. KALETRA [Suspect]
     Active Substance: LOPINAVIR\RITONAVIR
     Indication: COVID-19
     Route: 048

REACTIONS (2)
  - Off label use [Unknown]
  - Electrocardiogram QT prolonged [Unknown]
